FAERS Safety Report 13764530 (Version 1)
Quarter: 2017Q3

REPORT INFORMATION
  Report Type: Spontaneous
  Country: US (occurrence: US)
  Receive Date: 20170718
  Receipt Date: 20170718
  Transmission Date: 20171127
  Serious: No
  Sender: FDA-Public Use
  Company Number: US-NOVOPROD-549787

PATIENT
  Age: 37 Year
  Sex: Male

DRUGS (1)
  1. TRESIBA FLEXTOUCH U200 [Suspect]
     Active Substance: INSULIN DEGLUDEC
     Indication: DIABETES MELLITUS
     Dosage: 14 U, UNK
     Route: 058
     Dates: start: 20170529

REACTIONS (1)
  - Injection site pain [Not Recovered/Not Resolved]

NARRATIVE: CASE EVENT DATE: 20170529
